FAERS Safety Report 7820976-X (Version None)
Quarter: 2011Q4

REPORT INFORMATION
  Report Type: 
  Country: None (occurrence: None)
  Receive Date: 20111018
  Receipt Date: 20111007
  Transmission Date: 20120403
  Serious: Yes (Life-Threatening, Hospitalization, Other)
  Sender: FDA-Public Use
  Company Number: US-BAYER-2011-038381

PATIENT
  Age: 31 Year
  Sex: Female
  Weight: 82.086 kg

DRUGS (6)
  1. YASMIN [Suspect]
     Indication: ACNE
     Dosage: UNK
     Dates: start: 20030101, end: 20040101
  2. YASMIN [Suspect]
     Dosage: UNK
     Dates: start: 20080101, end: 20090101
  3. PROMETHAZINE [Concomitant]
     Dosage: UNK
     Dates: start: 20090512
  4. MELOXICAM [Concomitant]
     Dosage: UNK
     Dates: start: 20090512
  5. YAZ [Suspect]
     Indication: ACNE
     Dosage: UNK
     Dates: start: 20030101, end: 20040101
  6. YAZ [Suspect]
     Dosage: UNK
     Dates: start: 20080101, end: 20090101

REACTIONS (6)
  - TRANSVERSE SINUS THROMBOSIS [None]
  - CHOLECYSTECTOMY [None]
  - ORGAN FAILURE [None]
  - INJURY [None]
  - PAIN [None]
  - ANXIETY [None]
